FAERS Safety Report 16748701 (Version 2)
Quarter: 2020Q1

REPORT INFORMATION
  Report Type: Report from Study
  Country: US (occurrence: US)
  Receive Date: 20190828
  Receipt Date: 20200312
  Transmission Date: 20200409
  Serious: No
  Sender: FDA-Public Use
  Company Number: PHEH2019US035670

PATIENT
  Age: 41 Year
  Sex: Female

DRUGS (2)
  1. GILENYA [Suspect]
     Active Substance: FINGOLIMOD HYDROCHLORIDE
     Dosage: 0.5 MG, QD
     Route: 048
     Dates: start: 20190306
  2. GILENYA [Suspect]
     Active Substance: FINGOLIMOD HYDROCHLORIDE
     Indication: MULTIPLE SCLEROSIS
     Dosage: 0.5 MG, QD
     Route: 048
     Dates: start: 2012

REACTIONS (5)
  - Exposure to toxic agent [Unknown]
  - Melanocytic naevus [Unknown]
  - Urinary tract infection [Unknown]
  - Actinic keratosis [Unknown]
  - Product dose omission [Unknown]

NARRATIVE: CASE EVENT DATE: 20200228
